FAERS Safety Report 20450663 (Version 1)
Quarter: 2022Q1

REPORT INFORMATION
  Report Type: Spontaneous
  Country: US (occurrence: None)
  Receive Date: 20220209
  Receipt Date: 20220209
  Transmission Date: 20220423
  Serious: Yes (Life-Threatening)
  Sender: FDA-Public Use
  Company Number: None

PATIENT
  Age: 66 Year
  Sex: Male
  Weight: 89 kg

DRUGS (1)
  1. EVUSHELD [Suspect]
     Active Substance: CILGAVIMAB\TIXAGEVIMAB
     Indication: COVID-19 prophylaxis
     Dosage: FREQUENCY : ONCE;?
     Route: 030
     Dates: start: 20220125, end: 20220125

REACTIONS (11)
  - Dyspnoea [None]
  - Bradycardia [None]
  - Human rhinovirus test positive [None]
  - Atrial fibrillation [None]
  - Blood pressure systolic increased [None]
  - Cardiac arrest [None]
  - Hypoxia [None]
  - Pulseless electrical activity [None]
  - Electrocardiogram QRS complex prolonged [None]
  - Unresponsive to stimuli [None]
  - Coronavirus test positive [None]

NARRATIVE: CASE EVENT DATE: 20220207
